FAERS Safety Report 9813688 (Version 2)
Quarter: 2014Q1

REPORT INFORMATION
  Report Type: Spontaneous
  Country: IT (occurrence: IT)
  Receive Date: 20140113
  Receipt Date: 20140204
  Transmission Date: 20141002
  Serious: Yes (Other)
  Sender: FDA-Public Use
  Company Number: IT-TEVA-454168ISR

PATIENT
  Age: 34 Year
  Sex: Male

DRUGS (1)
  1. RISPERIDONE 4MG [Suspect]
     Indication: SCHIZOPHRENIA
     Dosage: 8 MILLIGRAM DAILY;
     Route: 048
     Dates: start: 20100606, end: 20131026

REACTIONS (7)
  - Drug effect decreased [Recovering/Resolving]
  - Anxiety [Recovering/Resolving]
  - Mood altered [Recovering/Resolving]
  - Thinking abnormal [Recovering/Resolving]
  - Schizophrenia [Recovering/Resolving]
  - Illusion [Recovering/Resolving]
  - Product substitution issue [Unknown]
